FAERS Safety Report 5619627-4 (Version None)
Quarter: 2008Q1

REPORT INFORMATION
  Report Type: 
  Country: None (occurrence: None)
  Receive Date: 20080205
  Receipt Date: 20080205
  Transmission Date: 20080703
  Serious: Yes (Life-Threatening, Hospitalization)
  Sender: FDA-Public Use
  Company Number: None

PATIENT
  Sex: Female
  Weight: 72.5755 kg

DRUGS (1)
  1. CHANTIX [Suspect]
     Indication: SMOKING CESSATION THERAPY
     Dosage: 1 2X DAILY
     Dates: start: 20070301, end: 20070415

REACTIONS (8)
  - ANGER [None]
  - DEPRESSED LEVEL OF CONSCIOUSNESS [None]
  - DEPRESSION [None]
  - FEELING ABNORMAL [None]
  - FEELING OF DESPAIR [None]
  - NIGHTMARE [None]
  - SUICIDAL IDEATION [None]
  - WEIGHT INCREASED [None]
